FAERS Safety Report 9587864 (Version 1)
Quarter: 2013Q4

REPORT INFORMATION
  Report Type: Spontaneous
  Country: DE (occurrence: DE)
  Receive Date: 20131003
  Receipt Date: 20131003
  Transmission Date: 20140711
  Serious: Yes (Other)
  Sender: FDA-Public Use
  Company Number: DE-WATSON-2013-17619

PATIENT
  Age: 52 Year
  Sex: Female
  Weight: 76 kg

DRUGS (5)
  1. VALSARTAN-HYDROCHLOROTHIAZIDE (UNKNOWN) [Suspect]
     Indication: HYPERTENSION
     Dosage: 320/25 MG, 1X1
     Route: 048
     Dates: start: 201301, end: 20130910
  2. ALPRAZOLAM [Concomitant]
     Indication: PANIC DISORDER
     Dosage: 1 MG, DAILY
     Route: 048
  3. CARVEDILOL [Concomitant]
     Indication: HYPERTENSION
     Dosage: 50 MG, DAILY
     Route: 048
     Dates: start: 201301
  4. CITALOPRAM [Concomitant]
     Indication: DEPRESSION
     Dosage: 20 MG, DAILY
     Route: 048
  5. METOPROLOL [Concomitant]
     Indication: PALPITATIONS
     Dosage: 95 MG, 0.5-0-1
     Route: 048

REACTIONS (4)
  - Myalgia [Recovering/Resolving]
  - Skin tightness [Recovering/Resolving]
  - Skin mass [Recovering/Resolving]
  - Butterfly rash [Recovering/Resolving]
